FAERS Safety Report 7790530-7 (Version None)
Quarter: 2011Q3

REPORT INFORMATION
  Report Type: 
  Country: None (occurrence: None)
  Receive Date: 20110930
  Receipt Date: 20110916
  Transmission Date: 20111222
  Serious: Yes (Other)
  Sender: FDA-Public Use
  Company Number: CA-ELI_LILLY_AND_COMPANY-CA201007004161

PATIENT
  Age: 65 Year
  Sex: Female

DRUGS (15)
  1. DIAMOX /00016901/ [Concomitant]
     Dosage: 125 MG, EACH MORNING
  2. ZINC [Concomitant]
     Indication: SUPPLEMENTATION THERAPY
     Dosage: 30 MG, QD
  3. ADVAIR DISKUS 100/50 [Concomitant]
  4. FORTEO [Suspect]
     Indication: OSTEOPOROSIS
     Dosage: 20 UG, DAILY (1/D)
     Route: 058
     Dates: start: 20100225
  5. LEVOTHYROXINE SODIUM [Concomitant]
     Indication: HYPOTHYROIDISM
     Dosage: 0.05 DF, EACH EVENING
  6. CALCIUM CARBONATE [Concomitant]
     Indication: SUPPLEMENTATION THERAPY
     Dosage: 930 MG, QD
  7. IRON [Concomitant]
     Indication: SUPPLEMENTATION THERAPY
     Dosage: UNK UNK, BID
  8. VENTOLIN [Concomitant]
  9. SERC                               /00034201/ [Concomitant]
  10. VITAMIN D [Concomitant]
     Indication: SUPPLEMENTATION THERAPY
     Dosage: 2000 MG, QD
  11. VAGIFEM [Concomitant]
     Indication: ATROPHIC VULVOVAGINITIS
     Dosage: 25 UG, 2/W
     Dates: start: 20091101
  12. FOLIC ACID [Concomitant]
     Indication: SUPPLEMENTATION THERAPY
  13. GRAVOL TAB [Concomitant]
     Dosage: UNK, AS NEEDED
  14. COQ10 [Concomitant]
     Indication: SUPPLEMENTATION THERAPY
     Dosage: 100 MG, UNK
  15. CALCIUM CARBONATE [Concomitant]
     Dosage: 1100 MG, QD

REACTIONS (3)
  - ANAEMIA [None]
  - HEPATOMEGALY [None]
  - EMPHYSEMA [None]
